FAERS Safety Report 20727510 (Version 1)
Quarter: 2022Q2

REPORT INFORMATION
  Report Type: Spontaneous
  Country: US (occurrence: None)
  Receive Date: 20220419
  Receipt Date: 20220419
  Transmission Date: 20220721
  Serious: No
  Sender: FDA-Public Use
  Company Number: US-ROCHE-2885074

PATIENT
  Sex: Female
  Weight: 81.266 kg

DRUGS (4)
  1. AVASTIN [Suspect]
     Active Substance: BEVACIZUMAB
     Indication: Ovarian cancer
     Dosage: ONGOING : YES
     Route: 042
     Dates: start: 20210803
  2. AVASTIN [Suspect]
     Active Substance: BEVACIZUMAB
     Dosage: FOR 6 CYCLES ;ONGOING: NO
     Route: 042
     Dates: start: 20210209
  3. CARBOPLATIN [Concomitant]
     Active Substance: CARBOPLATIN
     Indication: Ovarian cancer
  4. DOXORUBICIN [Concomitant]
     Active Substance: DOXORUBICIN
     Indication: Ovarian cancer

REACTIONS (2)
  - Cataract [Unknown]
  - Off label use [Unknown]
